FAERS Safety Report 10591087 (Version 2)
Quarter: 2014Q4

REPORT INFORMATION
  Report Type: Spontaneous
  Country: US (occurrence: US)
  Receive Date: 20141118
  Receipt Date: 20141118
  Transmission Date: 20150529
  Serious: Yes (Other)
  Sender: FDA-Public Use
  Company Number: US-PFIZER INC-2005144318

PATIENT
  Age: 16 Year
  Sex: Female

DRUGS (10)
  1. GEODON [Suspect]
     Active Substance: ZIPRASIDONE HYDROCHLORIDE\ZIPRASIDONE MESYLATE
     Indication: PARANOIA
     Dosage: 240 MG, 1X/DAY AT BEDTIME
     Route: 048
     Dates: start: 2005, end: 200510
  2. CELEXA [Concomitant]
     Active Substance: CITALOPRAM HYDROBROMIDE
     Dosage: 60 MG, UNK
     Route: 065
  3. LEXAPRO [Concomitant]
     Active Substance: ESCITALOPRAM OXALATE
     Dosage: 40 MG, UNK
  4. SEROQUEL [Concomitant]
     Active Substance: QUETIAPINE FUMARATE
     Dosage: 100 MG, UNK
  5. COGENTIN [Concomitant]
     Active Substance: BENZTROPINE MESYLATE
  6. DEPO-PROVERA [Concomitant]
     Active Substance: MEDROXYPROGESTERONE ACETATE
  7. GEODON [Suspect]
     Active Substance: ZIPRASIDONE HYDROCHLORIDE\ZIPRASIDONE MESYLATE
     Indication: AGITATION
     Dosage: 240 MG, DAILY
     Route: 048
     Dates: start: 200411
  8. GEODON [Suspect]
     Active Substance: ZIPRASIDONE HYDROCHLORIDE\ZIPRASIDONE MESYLATE
     Indication: MOOD ALTERED
     Dosage: 160 MG, DAILY
     Route: 048
     Dates: start: 20051013
  9. GEODON [Suspect]
     Active Substance: ZIPRASIDONE HYDROCHLORIDE\ZIPRASIDONE MESYLATE
     Dosage: 80 MG, 1X/DAY
     Route: 048
     Dates: start: 200511
  10. TOPAMAX [Concomitant]
     Active Substance: TOPIRAMATE
     Dosage: 25 MG, 2X/DAY

REACTIONS (6)
  - Dyspepsia [Unknown]
  - Dizziness [Unknown]
  - Renal failure [Unknown]
  - Nausea [Unknown]
  - Weight increased [Unknown]
  - Back pain [Unknown]

NARRATIVE: CASE EVENT DATE: 200510
